FAERS Safety Report 10686174 (Version 2)
Quarter: 2014Q4

REPORT INFORMATION
  Report Type: Spontaneous
  Country: US (occurrence: US)
  Receive Date: 20141231
  Receipt Date: 20141231
  Transmission Date: 20150529
  Serious: No
  Sender: FDA-Public Use
  Company Number: US-GLAXOSMITHKLINE-A1011455A

PATIENT
  Sex: Female

DRUGS (5)
  1. ADVAIR DISKUS [Suspect]
     Active Substance: FLUTICASONE PROPIONATE\SALMETEROL XINAFOATE
     Indication: ASTHMA
     Dosage: 250/50
     Dates: start: 2001
  2. ADVAIR DISKUS [Suspect]
     Active Substance: FLUTICASONE PROPIONATE\SALMETEROL XINAFOATE
     Indication: EMPHYSEMA
  3. PROVENTIL [Concomitant]
     Active Substance: ALBUTEROL
  4. OXYGEN. [Concomitant]
     Active Substance: OXYGEN
  5. ADVAIR DISKUS [Suspect]
     Active Substance: FLUTICASONE PROPIONATE\SALMETEROL XINAFOATE
     Indication: CHRONIC OBSTRUCTIVE PULMONARY DISEASE
     Dosage: 500/50
     Route: 055
     Dates: start: 2001

REACTIONS (6)
  - Drug effect decreased [Unknown]
  - Cataract [Recovering/Resolving]
  - Speech disorder [Recovering/Resolving]
  - Wheezing [Recovering/Resolving]
  - Dysphonia [Recovering/Resolving]
  - Dry throat [Unknown]

NARRATIVE: CASE EVENT DATE: 2010
